FAERS Safety Report 25538206 (Version 1)
Quarter: 2025Q3

REPORT INFORMATION
  Report Type: Spontaneous
  Country: US (occurrence: US)
  Receive Date: 20250710
  Receipt Date: 20250710
  Transmission Date: 20251020
  Serious: Yes (Hospitalization, Other)
  Sender: RANBAXY
  Company Number: US-SUN PHARMACEUTICAL INDUSTRIES INC-2025R1-515644

PATIENT
  Age: 66 Year
  Sex: Female

DRUGS (4)
  1. PREDNISONE [Suspect]
     Active Substance: PREDNISONE
     Indication: Diarrhoea
     Route: 048
  2. PREDNISONE [Suspect]
     Active Substance: PREDNISONE
     Indication: Abdominal pain
  3. USTEKINUMAB [Suspect]
     Active Substance: USTEKINUMAB
     Indication: Diarrhoea
     Route: 065
  4. USTEKINUMAB [Suspect]
     Active Substance: USTEKINUMAB
     Indication: Abdominal pain

REACTIONS (3)
  - Enterovesical fistula [Unknown]
  - Colitis [Unknown]
  - Apoptosis [Unknown]
